FAERS Safety Report 4758564-4 (Version None)
Quarter: 2005Q3

REPORT INFORMATION
  Report Type: 
  Country: None (occurrence: None)
  Receive Date: 20050826
  Receipt Date: 20050808
  Transmission Date: 20060218
  Serious: Yes (Death)
  Sender: FDA-Public Use
  Company Number: ENT 2005-0113

PATIENT
  Age: 78 Year
  Sex: Male

DRUGS (7)
  1. COMTESS (ENTACAPONE) [Suspect]
     Indication: PARKINSON'S DISEASE
     Dosage: 800 MG (200 MG, 4 IN 1 D) ORAL
     Route: 048
     Dates: start: 20030604
  2. ACARBOSE [Suspect]
     Indication: DIABETES MELLITUS
     Dosage: 100 MG (50 MG, 2 IN 1 D) ORAL
     Route: 048
     Dates: start: 19950101
  3. SINEMET CR [Concomitant]
  4. GLICLAZIDE [Concomitant]
  5. METFORMIN [Concomitant]
  6. BENZHEXOL [Concomitant]
  7. SINEMET [Concomitant]

REACTIONS (4)
  - FALL [None]
  - JAUNDICE [None]
  - SUBDURAL HAEMATOMA [None]
  - SUBDURAL HAEMORRHAGE [None]
